FAERS Safety Report 5845300-3 (Version None)
Quarter: 2008Q3

REPORT INFORMATION
  Report Type: 
  Country: None (occurrence: None)
  Receive Date: 20080731
  Receipt Date: 20080528
  Transmission Date: 20090109
  Serious: No
  Sender: FDA-Public Use
  Company Number: US200804005912

PATIENT
  Age: 66 Year
  Sex: Male
  Weight: 102 kg

DRUGS (11)
  1. BYETTA [Suspect]
     Indication: TYPE 2 DIABETES MELLITUS
     Dosage: 5 UG, 2/D, SUBCUTANEOUS; 10 UG, 2/D, SUBCUTANEOUS; 10 2/D
     Route: 058
     Dates: start: 20071101, end: 20080101
  2. BYETTA [Suspect]
     Indication: TYPE 2 DIABETES MELLITUS
     Dosage: 5 UG, 2/D, SUBCUTANEOUS; 10 UG, 2/D, SUBCUTANEOUS; 10 2/D
     Route: 058
     Dates: start: 20080101
  3. BYETTA [Suspect]
  4. GLIPIZIDE [Concomitant]
  5. PROTONIX [Concomitant]
  6. EFFEXOR XR [Concomitant]
  7. PLAVIX [Concomitant]
  8. ENAPRIL /00574901/ (ENALAPRIL) [Concomitant]
  9. SIMVASTATIN [Concomitant]
  10. ASPIRIN [Concomitant]
  11. TRIAMTERENE AND HYDROCHLOROTHIAZID (HYDROCHLOROTHIAZIDE, TRIAMTERENE) [Concomitant]

REACTIONS (10)
  - ASTHENIA [None]
  - BLOOD GLUCOSE DECREASED [None]
  - BLOOD GLUCOSE INCREASED [None]
  - DECREASED APPETITE [None]
  - DIZZINESS [None]
  - GLYCOSYLATED HAEMOGLOBIN INCREASED [None]
  - HEADACHE [None]
  - NASAL CONGESTION [None]
  - VOMITING [None]
  - WEIGHT DECREASED [None]
